FAERS Safety Report 8401509-6 (Version None)
Quarter: 2012Q2

REPORT INFORMATION
  Report Type: 
  Country: None (occurrence: None)
  Receive Date: 20120601
  Receipt Date: 20120523
  Transmission Date: 20120825
  Serious: Yes (Other)
  Sender: FDA-Public Use
  Company Number: US-JNJFOC-20120519529

PATIENT
  Age: 8 Decade
  Sex: Male

DRUGS (2)
  1. ZYTIGA [Suspect]
     Indication: PROSTATE CANCER
     Route: 048
     Dates: start: 20120201
  2. ZYTIGA [Suspect]
     Route: 048

REACTIONS (3)
  - ARRHYTHMIA [None]
  - LOSS OF CONSCIOUSNESS [None]
  - FATIGUE [None]
